FAERS Safety Report 5081747-3 (Version None)
Quarter: 2006Q3

REPORT INFORMATION
  Report Type: 
  Country: None (occurrence: None)
  Receive Date: 20060816
  Receipt Date: 20060809
  Transmission Date: 20061208
  Serious: Yes (Other)
  Sender: FDA-Public Use
  Company Number: CA-BAYER-200613497GDS

PATIENT

DRUGS (1)
  1. TRASYLOL [Suspect]
     Indication: OPERATIVE HAEMORRHAGE
     Route: 042

REACTIONS (1)
  - HAEMODYNAMIC INSTABILITY [None]
